FAERS Safety Report 7427626-5 (Version None)
Quarter: 2011Q2

REPORT INFORMATION
  Report Type: 
  Country: None (occurrence: None)
  Receive Date: 20110421
  Receipt Date: 20110411
  Transmission Date: 20111010
  Serious: Yes (Hospitalization, Other)
  Sender: FDA-Public Use
  Company Number: US-MYLANLABS-2011S1007629

PATIENT
  Age: 64 Year
  Sex: Male

DRUGS (2)
  1. LEVETIRACETAM [Suspect]
  2. ATENOLOL [Suspect]

REACTIONS (4)
  - AGGRESSION [None]
  - ATRIOVENTRICULAR BLOCK [None]
  - MENTAL STATUS CHANGES [None]
  - BELLIGERENCE [None]
